FAERS Safety Report 5702571-1 (Version None)
Quarter: 2008Q2

REPORT INFORMATION
  Report Type: 
  Country: None (occurrence: None)
  Receive Date: 20080410
  Receipt Date: 20080410
  Transmission Date: 20081010
  Serious: Yes (Other)
  Sender: FDA-Public Use
  Company Number: None

PATIENT
  Age: 60 Year
  Sex: Male
  Weight: 88.4514 kg

DRUGS (1)
  1. SULAR [Suspect]
     Dosage: ONE 30 MG DAILY PO
     Route: 048
     Dates: start: 20071101, end: 20080220

REACTIONS (2)
  - ALOPECIA [None]
  - STRESS [None]
